FAERS Safety Report 9771921 (Version 1)
Quarter: 2013Q4

REPORT INFORMATION
  Report Type: Spontaneous
  Country: BR (occurrence: None)
  Receive Date: 20131001
  Receipt Date: 20131001
  Transmission Date: 20140711
  Serious: Yes (Other)
  Sender: FDA-Public Use
  Company Number: 20130448

PATIENT
  Age: 41 Year
  Sex: Female

DRUGS (4)
  1. VENOFER [Suspect]
     Indication: ANAEMIA
     Dosage: 5 AMPOULES IN 250 ML NS INTRAVENOUS DRIP
     Route: 041
     Dates: start: 20130720, end: 20130729
  2. HYDROCHLOROTHIAZIDE [Concomitant]
  3. GESTODENE/ETHINYLESTRADIOL (GESTINOL) [Concomitant]
  4. ENALAPRIL [Concomitant]

REACTIONS (12)
  - Incorrect drug administration rate [None]
  - Overdose [None]
  - Dyspepsia [None]
  - Abdominal pain upper [None]
  - Nausea [None]
  - Vomiting [None]
  - Diarrhoea [None]
  - Paraesthesia [None]
  - Arthralgia [None]
  - Local swelling [None]
  - Hypotension [None]
  - Syncope [None]
